FAERS Safety Report 18171106 (Version 3)
Quarter: 2020Q4

REPORT INFORMATION
  Report Type: Spontaneous
  Country: DE (occurrence: DE)
  Receive Date: 20200819
  Receipt Date: 20201118
  Transmission Date: 20210113
  Serious: Yes (Hospitalization, Other)
  Sender: FDA-Public Use
  Company Number: DE-GLAXOSMITHKLINE-DE2020EME153082

PATIENT
  Age: 61 Year
  Sex: Male
  Weight: 169 kg

DRUGS (1)
  1. TRIUMEQ [Suspect]
     Active Substance: ABACAVIR SULFATE\DOLUTEGRAVIR SODIUM\LAMIVUDINE
     Indication: HIV INFECTION
     Dosage: UNK UNK, QD
     Dates: start: 20160413, end: 20190927

REACTIONS (8)
  - Myocardial infarction [Recovered/Resolved]
  - Hypertension [Unknown]
  - Angina pectoris [Not Recovered/Not Resolved]
  - Gamma-glutamyltransferase increased [Not Recovered/Not Resolved]
  - Coronary artery disease [Unknown]
  - Hemianopia [Recovered/Resolved]
  - Intracranial aneurysm [Not Recovered/Not Resolved]
  - Hepatic steatosis [Not Recovered/Not Resolved]

NARRATIVE: CASE EVENT DATE: 201811
